APPROVED DRUG PRODUCT: IVERMECTIN
Active Ingredient: IVERMECTIN
Strength: 0.5%
Dosage Form/Route: LOTION;TOPICAL
Application: A210720 | Product #001
Applicant: TARO PHARMACEUTICAL INDUSTRIES LTD
Approved: May 6, 2020 | RLD: No | RS: No | Type: OTC